FAERS Safety Report 23258885 (Version 1)
Quarter: 2023Q4

REPORT INFORMATION
  Report Type: Spontaneous
  Country: US (occurrence: None)
  Receive Date: 20231203
  Receipt Date: 20231203
  Transmission Date: 20240110
  Serious: No
  Sender: FDA-Public Use
  Company Number: None

PATIENT
  Age: 32 Year
  Sex: Male
  Weight: 85.5 kg

DRUGS (1)
  1. CLARAVIS [Suspect]
     Active Substance: ISOTRETINOIN
     Indication: Acne
     Dates: start: 20230907, end: 20231201

REACTIONS (3)
  - Erectile dysfunction [None]
  - Genital hypoaesthesia [None]
  - Penile vascular disorder [None]

NARRATIVE: CASE EVENT DATE: 20231201
